FAERS Safety Report 4320879-1 (Version None)
Quarter: 2004Q1

REPORT INFORMATION
  Report Type: 
  Country: None (occurrence: None)
  Receive Date: 20040318
  Receipt Date: 20040309
  Transmission Date: 20041129
  Serious: Yes (Death)
  Sender: FDA-Public Use
  Company Number: 163-20785-04020567

PATIENT
  Age: 65 Year
  Sex: Female

DRUGS (1)
  1. THALOMID [Suspect]
     Indication: MALIGNANT MELANOMA
     Dosage: 200 MG, DAILY, ORAL
     Route: 048
     Dates: start: 20031031, end: 20031101

REACTIONS (1)
  - METASTATIC MALIGNANT MELANOMA [None]
